FAERS Safety Report 19874347 (Version 1)
Quarter: 2021Q3

REPORT INFORMATION
  Report Type: Report from Study
  Country: US (occurrence: US)
  Receive Date: 20210923
  Receipt Date: 20210923
  Transmission Date: 20211014
  Serious: Yes (Other)
  Sender: FDA-Public Use
  Company Number: US-BAYER-2021A215012

PATIENT
  Sex: Female

DRUGS (1)
  1. CORICIDIN HBP MAXIMUM STRENGTH MULTI SYMPTOM FLU [Suspect]
     Active Substance: ACETAMINOPHEN\CHLORPHENIRAMINE MALEATE\DEXTROMETHORPHAN HYDROBROMIDE
     Dosage: N/A
     Route: 048
     Dates: start: 20210920

REACTIONS (1)
  - Choking [Unknown]

NARRATIVE: CASE EVENT DATE: 20210920
